FAERS Safety Report 21308823 (Version 1)
Quarter: 2022Q3

REPORT INFORMATION
  Report Type: Spontaneous
  Country: US (occurrence: None)
  Receive Date: 20220908
  Receipt Date: 20220908
  Transmission Date: 20221027
  Serious: Yes (Other)
  Sender: FDA-Public Use
  Company Number: None

PATIENT
  Age: 65 Year
  Sex: Male
  Weight: 77.6 kg

DRUGS (3)
  1. LORAZEPAM [Suspect]
     Active Substance: LORAZEPAM
     Indication: Agitation
     Dosage: FREQUENCY : 3 TIMES A DAY;?
  2. LORAZEPAM [Suspect]
     Active Substance: LORAZEPAM
     Indication: Aggression
  3. DIVALPROEX SODIUM [Concomitant]
     Active Substance: DIVALPROEX SODIUM
     Dates: start: 20220128

REACTIONS (2)
  - Urinary retention [None]
  - Urinary tract infection [None]

NARRATIVE: CASE EVENT DATE: 20220525
